FAERS Safety Report 5229750-4 (Version None)
Quarter: 2007Q1

REPORT INFORMATION
  Report Type: 
  Country: None (occurrence: None)
  Receive Date: 20070201
  Receipt Date: 20070119
  Transmission Date: 20070707
  Serious: Yes (Other)
  Sender: FDA-Public Use
  Company Number: 2007RR-05475

PATIENT
  Age: 52 Year
  Sex: Male
  Weight: 52.5 kg

DRUGS (5)
  1. FENOFIBRATE [Suspect]
     Dosage: 160 MG
  2. ROSIGLITAZONE [Suspect]
     Dosage: 4 MG
  3. GLICLAZIDE (GLICLAZIDE) [Concomitant]
  4. METFORMIN HCL [Concomitant]
  5. ATORVASTATIN CALCIUM [Concomitant]

REACTIONS (3)
  - DRUG INTERACTION [None]
  - HIGH DENSITY LIPOPROTEIN DECREASED [None]
  - IDIOSYNCRATIC DRUG REACTION [None]
